FAERS Safety Report 7558414-7 (Version None)
Quarter: 2011Q2

REPORT INFORMATION
  Report Type: 
  Country: None (occurrence: None)
  Receive Date: 20110620
  Receipt Date: 20110613
  Transmission Date: 20111010
  Serious: Yes (Hospitalization, Other)
  Sender: FDA-Public Use
  Company Number: PHHO2007US20875

PATIENT
  Sex: Male
  Weight: 143 kg

DRUGS (17)
  1. PROTONIX [Concomitant]
     Dosage: 20 MG, UNK
  2. SENOKOT [Concomitant]
  3. ZOFRAN [Concomitant]
     Dosage: 4 MG, UNK
  4. TYLENOL-500 [Concomitant]
     Dosage: 650 MG, UNK
  5. METOPROLOL TARTRATE [Concomitant]
     Dosage: 50 MG, UNK
  6. SERTRALINE [Concomitant]
     Dosage: 50 MG, UNK
  7. MOM [Concomitant]
     Dosage: 30 ML, UNK
  8. TRAMADOL HCL [Concomitant]
  9. AFINITOR [Suspect]
     Dosage: CODE NOT BROKEN
     Route: 048
     Dates: start: 20071031
  10. LANTUS [Concomitant]
     Dosage: 16 U, UNK
  11. OXYCODONE HCL [Concomitant]
     Dosage: 5 MG, UNK
  12. CALCIUM CARBONATE [Concomitant]
     Dosage: 500 MG, UNK
  13. LIPITOR [Concomitant]
     Dosage: 80 MG, UNK
  14. BISACODYL [Concomitant]
     Dosage: 10 MG, UNK
  15. COUMADIN [Concomitant]
     Dosage: 7.5 MG, UNK
  16. AFINITOR [Suspect]
     Indication: RENAL CANCER METASTATIC
     Dosage: CODE NOT BROKEN
     Route: 048
     Dates: start: 20070419, end: 20071029
  17. NEFRIX [Concomitant]
     Dosage: 150 MG, UNK

REACTIONS (7)
  - FEMUR FRACTURE [None]
  - PAIN IN EXTREMITY [None]
  - METASTASES TO BONE [None]
  - MEDICAL DEVICE COMPLICATION [None]
  - IMPAIRED HEALING [None]
  - POSTOPERATIVE WOUND INFECTION [None]
  - WOUND DEHISCENCE [None]
